FAERS Safety Report 9058474 (Version 1)
Quarter: 2013Q1

REPORT INFORMATION
  Report Type: Spontaneous
  Country: TR (occurrence: TR)
  Receive Date: 20130211
  Receipt Date: 20130211
  Transmission Date: 20140127
  Serious: Yes (Hospitalization, Other)
  Sender: FDA-Public Use
  Company Number: TR-JNJFOC-20130201799

PATIENT
  Age: 75 Year
  Sex: Female

DRUGS (1)
  1. GALANTAMINE HBR [Suspect]
     Indication: DEMENTIA ALZHEIMER^S TYPE
     Route: 065

REACTIONS (2)
  - Syncope [Recovered/Resolved]
  - Bradyarrhythmia [Recovered/Resolved]
